FAERS Safety Report 6260206-6 (Version None)
Quarter: 2009Q3

REPORT INFORMATION
  Report Type: 
  Country: None (occurrence: None)
  Receive Date: 20090708
  Receipt Date: 20090629
  Transmission Date: 20100115
  Serious: Yes (Hospitalization)
  Sender: FDA-Public Use
  Company Number: B0581753A

PATIENT
  Age: 22 Year
  Sex: Female

DRUGS (14)
  1. PAXIL [Suspect]
     Dosage: 10MG PER DAY
     Route: 048
  2. ENALAPRIL [Concomitant]
     Route: 048
  3. ENALAPRIL [Concomitant]
     Route: 048
  4. RISPERIDONE [Concomitant]
     Route: 065
  5. BIPERIDEN HYDROCHLORIDE [Concomitant]
     Route: 048
  6. VEGETAMIN [Concomitant]
     Route: 048
  7. NITRAZEPAM [Concomitant]
     Dosage: 10MG PER DAY
     Route: 065
  8. VALPROATE SODIUM [Concomitant]
     Dosage: 400MG PER DAY
     Route: 048
  9. VALPROATE SODIUM [Concomitant]
     Dosage: 600MG PER DAY
     Route: 048
  10. ZOTEPINE [Concomitant]
     Dosage: 150MG PER DAY
     Route: 048
  11. ZOTEPINE [Concomitant]
     Dosage: 200MG PER DAY
     Route: 048
  12. ZOTEPINE [Concomitant]
     Dosage: 250MG PER DAY
     Route: 048
  13. ZOTEPINE [Concomitant]
     Dosage: 200MG PER DAY
     Route: 048
  14. ZOTEPINE [Concomitant]
     Dosage: 100MG PER DAY
     Route: 048

REACTIONS (4)
  - ACTIVATION SYNDROME [None]
  - AGGRESSION [None]
  - IMPULSIVE BEHAVIOUR [None]
  - SCREAMING [None]
